FAERS Safety Report 7047164-1 (Version None)
Quarter: 2010Q4

REPORT INFORMATION
  Report Type: 
  Country: None (occurrence: None)
  Receive Date: 20101015
  Receipt Date: 20101008
  Transmission Date: 20110411
  Serious: Yes (Death, Hospitalization)
  Sender: FDA-Public Use
  Company Number: ES-ELI_LILLY_AND_COMPANY-ES201010002618

PATIENT
  Sex: Male
  Weight: 48 kg

DRUGS (3)
  1. GEMCITABINE HCL [Suspect]
     Indication: PANCREATIC CARCINOMA METASTATIC
     Dosage: 1000 MG/M2, UNKNOWN
     Route: 042
     Dates: start: 20091204, end: 20091218
  2. OTHER PHARMA COMPANY INV DRUG [Suspect]
     Indication: PANCREATIC CARCINOMA METASTATIC
     Dosage: 48 MG/KG (2300MG), LOADING DOSE
     Route: 042
     Dates: start: 20091204, end: 20091204
  3. OTHER PHARMA COMPANY INV DRUG [Suspect]
     Dosage: 34 MG/KG, OTHER
     Route: 042

REACTIONS (6)
  - ASTHENIA [None]
  - DEATH [None]
  - DIARRHOEA [None]
  - FEBRILE NEUTROPENIA [None]
  - PANCYTOPENIA [None]
  - RECTAL HAEMORRHAGE [None]
